FAERS Safety Report 7387156-6 (Version None)
Quarter: 2011Q1

REPORT INFORMATION
  Report Type: 
  Country: None (occurrence: None)
  Receive Date: 20110331
  Receipt Date: 20110321
  Transmission Date: 20110831
  Serious: Yes (Other)
  Sender: FDA-Public Use
  Company Number: A0920577A

PATIENT
  Sex: Male

DRUGS (5)
  1. KALETRA [Suspect]
     Indication: ANTIVIRAL TREATMENT
     Dosage: 4TAB PER DAY
     Route: 064
     Dates: start: 20100912
  2. RETROVIR [Concomitant]
     Dosage: 1MGKH SINGLE DOSE
     Route: 064
     Dates: start: 20110225, end: 20110225
  3. COMBIVIR [Suspect]
     Indication: ANTIVIRAL TREATMENT
     Dosage: 2TAB PER DAY
     Route: 064
     Dates: start: 20100912, end: 20101210
  4. TRUVADA [Suspect]
     Indication: ANTIVIRAL TREATMENT
     Dosage: 1TAB PER DAY
     Route: 064
     Dates: start: 20101210
  5. RETROVIR [Concomitant]
     Indication: ANTIVIRAL TREATMENT
     Dosage: 2MGKH SINGLE DOSE
     Route: 064
     Dates: start: 20110225, end: 20110225

REACTIONS (3)
  - DRUG EXPOSURE DURING PREGNANCY [None]
  - TRISOMY 21 [None]
  - PATENT DUCTUS ARTERIOSUS [None]
